FAERS Safety Report 17484350 (Version 1)
Quarter: 2020Q1

REPORT INFORMATION
  Report Type: Spontaneous
  Country: US (occurrence: US)
  Receive Date: 20200302
  Receipt Date: 20200302
  Transmission Date: 20200409
  Serious: Yes (Hospitalization, Other)
  Sender: FDA-Public Use
  Company Number: US-ALEMBIC PHARMACUETICALS LIMITED-2020SCAL000083

PATIENT

DRUGS (4)
  1. RIFAMPIN. [Suspect]
     Active Substance: RIFAMPIN
     Indication: TUBERCULOSIS OF EYE
     Dosage: UNK
  2. ISONIAZID. [Suspect]
     Active Substance: ISONIAZID
     Indication: TUBERCULOSIS OF EYE
     Dosage: UNK
  3. PYRAZINAMIDE. [Suspect]
     Active Substance: PYRAZINAMIDE
     Indication: TUBERCULOSIS OF EYE
     Dosage: UNK
  4. MOXIFLOXACIN. [Suspect]
     Active Substance: MOXIFLOXACIN
     Indication: TUBERCULOSIS OF EYE
     Dosage: UNK

REACTIONS (14)
  - Intra-abdominal haemorrhage [Recovering/Resolving]
  - Nausea [Recovering/Resolving]
  - Aspartate aminotransferase increased [Recovering/Resolving]
  - Alanine aminotransferase increased [Recovering/Resolving]
  - Vomiting [Recovering/Resolving]
  - Condition aggravated [Recovering/Resolving]
  - Blood bilirubin increased [Recovering/Resolving]
  - Model for end stage liver disease score increased [Recovering/Resolving]
  - Diarrhoea [Recovering/Resolving]
  - International normalised ratio increased [Recovering/Resolving]
  - Hepatic fibrosis [Recovering/Resolving]
  - Abdominal pain upper [Recovering/Resolving]
  - Drug-induced liver injury [Recovering/Resolving]
  - Hepatic necrosis [Recovering/Resolving]
